FAERS Safety Report 16600683 (Version 1)
Quarter: 2019Q3

REPORT INFORMATION
  Report Type: Report from Study
  Country: None (occurrence: CO)
  Receive Date: 20190720
  Receipt Date: 20190720
  Transmission Date: 20191004
  Serious: Yes (Other)
  Sender: FDA-Public Use
  Company Number: CO-ABBVIE-19K-036-2829104-00

PATIENT
  Age: 43 Year
  Sex: Female
  Weight: 58 kg

DRUGS (2)
  1. HUMIRA [Suspect]
     Active Substance: ADALIMUMAB
     Indication: ANKYLOSING SPONDYLITIS
     Route: 058
     Dates: start: 20151105
  2. HUMIRA [Suspect]
     Active Substance: ADALIMUMAB
     Indication: ANKYLOSING SPONDYLITIS
     Route: 058
     Dates: end: 20190503

REACTIONS (16)
  - Influenza [Recovering/Resolving]
  - Joint stiffness [Recovering/Resolving]
  - Asphyxia [Recovered/Resolved]
  - Diarrhoea [Recovering/Resolving]
  - Choking [Recovering/Resolving]
  - Arthralgia [Not Recovered/Not Resolved]
  - Musculoskeletal stiffness [Unknown]
  - Epistaxis [Recovered/Resolved]
  - Skin fissures [Recovering/Resolving]
  - Abdominal distension [Recovering/Resolving]
  - Pruritus [Recovering/Resolving]
  - Arthritis [Not Recovered/Not Resolved]
  - Rash generalised [Unknown]
  - Ear pain [Recovering/Resolving]
  - Coccydynia [Unknown]
  - Epistaxis [Recovering/Resolving]

NARRATIVE: CASE EVENT DATE: 20151105
